FAERS Safety Report 11024552 (Version 1)
Quarter: 2015Q2

REPORT INFORMATION
  Report Type: Report from Study
  Country: US (occurrence: US)
  Receive Date: 20150414
  Receipt Date: 20150414
  Transmission Date: 20150821
  Serious: Yes (Other)
  Sender: FDA-Public Use
  Company Number: US-AMGEN-USASL2014086309

PATIENT
  Age: 34 Year
  Sex: Female
  Weight: 87.75 kg

DRUGS (4)
  1. ZYRTEC [Concomitant]
     Active Substance: CETIRIZINE HYDROCHLORIDE
     Indication: SEASONAL ALLERGY
     Dosage: UNK UNK, QD
     Route: 048
     Dates: start: 20130101
  2. PRENATAL VITAMINS                  /07499601/ [Concomitant]
     Active Substance: VITAMINS
     Indication: PREGNANCY
     Dosage: UNK UNK, QD
     Route: 048
     Dates: start: 20130622
  3. ENBREL [Suspect]
     Active Substance: ETANERCEPT
     Indication: PSORIATIC ARTHROPATHY
     Dosage: 50 MG, QWK
     Route: 065
     Dates: start: 20140130
  4. BABY ASPIRIN [Concomitant]
     Active Substance: ASPIRIN
     Indication: FACTOR V LEIDEN MUTATION
     Dosage: 81 MG, QD
     Route: 048
     Dates: start: 20120630

REACTIONS (3)
  - Pyrexia [Unknown]
  - Pregnancy [Recovered/Resolved]
  - Induced labour [Recovered/Resolved]

NARRATIVE: CASE EVENT DATE: 20140527
